FAERS Safety Report 7214329-5 (Version None)
Quarter: 2011Q1

REPORT INFORMATION
  Report Type: 
  Country: None (occurrence: None)
  Receive Date: 20110107
  Receipt Date: 20101231
  Transmission Date: 20110831
  Serious: Yes (Death)
  Sender: FDA-Public Use
  Company Number: US-PFIZER INC-2011001772

PATIENT
  Age: 55 Year
  Sex: Female

DRUGS (7)
  1. MIRTAZAPINE [Suspect]
  2. LITHIUM CARBONATE [Suspect]
  3. ZOLPIDEM [Suspect]
  4. ALPRAZOLAM [Suspect]
     Dosage: UNK
  5. AMITRIPTYLINE [Suspect]
  6. RISPERDONE [Suspect]
  7. OLANZAPINE [Suspect]

REACTIONS (2)
  - COMPLETED SUICIDE [None]
  - INTENTIONAL DRUG MISUSE [None]
